FAERS Safety Report 4814940-2 (Version None)
Quarter: 2005Q4

REPORT INFORMATION
  Report Type: 
  Country: None (occurrence: None)
  Receive Date: 20051026
  Receipt Date: 20051019
  Transmission Date: 20060501
  Serious: Yes (Other)
  Sender: FDA-Public Use
  Company Number: 2005144322

PATIENT
  Sex: Male
  Weight: 20 kg

DRUGS (1)
  1. DILANTIN [Suspect]
     Indication: EPILEPSY
     Dosage: 75MG AM, 100MG PM (2 IN 1 D)

REACTIONS (4)
  - GINGIVAL HYPERTROPHY [None]
  - GINGIVITIS [None]
  - GROWTH RETARDATION [None]
  - TOOTH DEVELOPMENT DISORDER [None]
